FAERS Safety Report 25683353 (Version 1)
Quarter: 2025Q3

REPORT INFORMATION
  Report Type: Spontaneous
  Country: US (occurrence: US)
  Receive Date: 20250814
  Receipt Date: 20250814
  Transmission Date: 20251021
  Serious: Yes (Hospitalization)
  Sender: PURDUE
  Company Number: US-PURDUE PHARMA-USA-2025-0319750

PATIENT
  Age: 37 Year
  Sex: Male

DRUGS (11)
  1. OXYCODONE HYDROCHLORIDE [Suspect]
     Active Substance: OXYCODONE HYDROCHLORIDE
     Indication: Back pain
     Route: 048
  2. OXYCODONE HYDROCHLORIDE [Suspect]
     Active Substance: OXYCODONE HYDROCHLORIDE
     Dosage: 10 MILLIGRAM, QID
     Route: 048
  3. CLONAZEPAM [Suspect]
     Active Substance: CLONAZEPAM
     Indication: Generalised anxiety disorder
     Dosage: 0.5 MILLIGRAM, QID (4 TIMES DAILY)
     Route: 048
  4. CLONAZEPAM [Suspect]
     Active Substance: CLONAZEPAM
     Dosage: 1 MILLIGRAM, TID
     Route: 048
  5. CLONAZEPAM [Suspect]
     Active Substance: CLONAZEPAM
     Dosage: 2 MILLIGRAM, DAILY
     Route: 048
  6. METHADONE [Suspect]
     Active Substance: METHADONE HYDROCHLORIDE
     Indication: Back pain
     Route: 048
  7. METHADONE [Suspect]
     Active Substance: METHADONE HYDROCHLORIDE
     Dosage: 5 MILLIGRAM, BID
     Route: 048
  8. METHADONE [Suspect]
     Active Substance: METHADONE HYDROCHLORIDE
     Dosage: 60 MILLIGRAM, DAILY
     Route: 048
  9. METHADONE [Suspect]
     Active Substance: METHADONE HYDROCHLORIDE
     Dosage: 10 MILLIGRAM, Q4H
     Route: 048
  10. CANNABIDIOL\HERBALS\TETRAHYDROCANNABINOL UNSPECIFIED [Suspect]
     Active Substance: CANNABIDIOL\HERBALS\TETRAHYDROCANNABINOL UNSPECIFIED
     Indication: Product used for unknown indication
     Route: 065
  11. PHENOBARBITAL [Suspect]
     Active Substance: PHENOBARBITAL
     Indication: Generalised anxiety disorder
     Route: 065

REACTIONS (3)
  - Catatonia [Recovered/Resolved]
  - Drug withdrawal syndrome [Recovered/Resolved]
  - Drug screen positive [Unknown]
